FAERS Safety Report 12272705 (Version 1)
Quarter: 2016Q2

REPORT INFORMATION
  Report Type: Spontaneous
  Country: US (occurrence: US)
  Receive Date: 20160415
  Receipt Date: 20160415
  Transmission Date: 20160815
  Serious: Yes (Hospitalization)
  Sender: FDA-Public Use
  Company Number: US-ACTELION-A-US2016-134310

PATIENT
  Age: 21 Month
  Sex: Male

DRUGS (16)
  1. CLONIDINE. [Concomitant]
     Active Substance: CLONIDINE
  2. SILDENAFIL. [Concomitant]
     Active Substance: SILDENAFIL
  3. GABAPENTIN. [Concomitant]
     Active Substance: GABAPENTIN
  4. PREDNISONE. [Concomitant]
     Active Substance: PREDNISONE
  5. DIGOXIN. [Concomitant]
     Active Substance: DIGOXIN
  6. CALCIUM CARBONATE. [Concomitant]
     Active Substance: CALCIUM CARBONATE
  7. BACTRIM [Concomitant]
     Active Substance: SULFAMETHOXAZOLE\TRIMETHOPRIM
  8. DIURIL [Concomitant]
     Active Substance: CHLOROTHIAZIDE
  9. ALBUTEROL. [Concomitant]
     Active Substance: ALBUTEROL
  10. VITAMIN B COMPLEX [Concomitant]
     Active Substance: CYANOCOBALAMIN\DEXPANTHENOL\NIACINAMIDE\PYRIDOXINE HYDROCHLORIDE\RIBOFLAVIN 5^-PHOSPHATE SODIUM\THIAMINE HYDROCHLORIDE\VITAMIN B COMPLEX
  11. METHADONE [Concomitant]
     Active Substance: METHADONE HYDROCHLORIDE
  12. CULTURELLE FOR KIDS [Concomitant]
  13. IPRATROPIUM [Concomitant]
     Active Substance: IPRATROPIUM
  14. TRACLEER [Suspect]
     Active Substance: BOSENTAN
     Indication: PULMONARY ARTERIAL HYPERTENSION
     Dosage: 15.625 MG, UNK
     Route: 048
     Dates: start: 20150313
  15. PREVACID [Concomitant]
     Active Substance: LANSOPRAZOLE
  16. COREG [Concomitant]
     Active Substance: CARVEDILOL

REACTIONS (2)
  - Respiratory tract infection viral [Unknown]
  - Rhinovirus infection [Unknown]

NARRATIVE: CASE EVENT DATE: 20160401
